FAERS Safety Report 8491681-4 (Version None)
Quarter: 2012Q3

REPORT INFORMATION
  Report Type: 
  Country: None (occurrence: None)
  Receive Date: 20120706
  Receipt Date: 20120702
  Transmission Date: 20120928
  Serious: Yes (Hospitalization)
  Sender: FDA-Public Use
  Company Number: BE-BRISTOL-MYERS SQUIBB COMPANY-16620148

PATIENT
  Age: 50 Year
  Sex: Female
  Weight: 72 kg

DRUGS (5)
  1. PRIMPERAN TAB [Concomitant]
     Dates: start: 20120314, end: 20120326
  2. BISOPROLOL FUMARATE [Concomitant]
     Indication: PALPITATIONS
     Dates: start: 20020101
  3. ETOPOSIDE [Suspect]
     Indication: NON-SMALL CELL LUNG CANCER STAGE III
     Dosage: 50MG/M2,DAY1+8:4WK CY,REG2:37.5MG/M2 ON DAY 1TO 5EVERY CY.13FEB-16MAR12,30APR12-ONG,LAST DSE:16MAR12
     Route: 042
     Dates: start: 20120213
  4. CISPLATIN [Suspect]
     Indication: NON-SMALL CELL LUNG CANCER STAGE III
     Dosage: 50MG/M2,DAY 1+8:4WKS CY,REG2:37.5MG/M2:DAY 1+8 EVERY CY.13FEB12-18MAR12,30APR12-ONG,LAST DSE:18MAR12
     Route: 042
     Dates: start: 20120213
  5. ACETAMINOPHEN [Concomitant]
     Indication: BACK PAIN
     Dates: start: 20020101

REACTIONS (2)
  - FEBRILE NEUTROPENIA [None]
  - OESOPHAGITIS [None]
